FAERS Safety Report 23028364 (Version 1)
Quarter: 2023Q4

REPORT INFORMATION
  Report Type: Spontaneous
  Country: US (occurrence: None)
  Receive Date: 20231004
  Receipt Date: 20231004
  Transmission Date: 20240109
  Serious: Yes (Other)
  Sender: FDA-Public Use
  Company Number: None

PATIENT
  Age: 53 Year
  Sex: Female
  Weight: 64.35 kg

DRUGS (9)
  1. TRADJENTA [Suspect]
     Active Substance: LINAGLIPTIN
     Indication: Type 2 diabetes mellitus
     Dates: start: 20230828, end: 20230929
  2. METFORMIN [Concomitant]
     Active Substance: METFORMIN HYDROCHLORIDE
  3. NEXLIZET [Concomitant]
     Active Substance: BEMPEDOIC ACID\EZETIMIBE
  4. FARXIGA [Concomitant]
     Active Substance: DAPAGLIFLOZIN PROPANEDIOL
  5. TRESIBA [Concomitant]
     Active Substance: INSULIN DEGLUDEC
  6. VITAMIN C [Concomitant]
     Active Substance: ASCORBIC ACID
  7. VITAMINS [Concomitant]
     Active Substance: VITAMINS
  8. CALCIUM [Concomitant]
     Active Substance: CALCIUM
  9. VITAMIN D [Concomitant]
     Active Substance: VITAMIN D NOS

REACTIONS (8)
  - Therapy cessation [None]
  - Diarrhoea [None]
  - Gastrooesophageal reflux disease [None]
  - Arthralgia [None]
  - Arthralgia [None]
  - Migraine [None]
  - Impaired work ability [None]
  - Vomiting [None]

NARRATIVE: CASE EVENT DATE: 20230929
